FAERS Safety Report 14403787 (Version 4)
Quarter: 2018Q1

REPORT INFORMATION
  Report Type: Report from Study
  Country: BR (occurrence: BR)
  Receive Date: 20180117
  Receipt Date: 20180223
  Transmission Date: 20180509
  Serious: Yes (Other)
  Sender: FDA-Public Use
  Company Number: PHHY2018BR005025

PATIENT
  Sex: Male
  Weight: 75 kg

DRUGS (11)
  1. EXODUS//NICOTINE [Concomitant]
     Active Substance: NICOTINE
     Indication: DEPRESSION
     Dosage: 1 DF, QD (1.5 YEARS)
     Route: 048
  2. QUETIAPINE. [Concomitant]
     Active Substance: QUETIAPINE
     Indication: DEMENTIA ALZHEIMER^S TYPE
     Dosage: 0.5 DF, QD (FOR 8 MONTHS)
     Route: 048
  3. RIVOTRIL [Concomitant]
     Active Substance: CLONAZEPAM
     Indication: RESTLESS LEGS SYNDROME
     Dosage: 1 DRP, QD (1 MONTH AGO)
     Route: 048
  4. DIOVAN [Suspect]
     Active Substance: VALSARTAN
     Indication: HYPERTENSION
     Dosage: 80 MG, QD (APPROXIMATELY 20 YEARS)
     Route: 048
  5. SIFROL [Concomitant]
     Active Substance: PRAMIPEXOLE
     Indication: RESTLESS LEGS SYNDROME
     Dosage: 1 MG, QD (10 YEARS AGO)
     Route: 048
  6. MONOCORDIL [Concomitant]
     Active Substance: ISOSORBIDE MONONITRATE
     Indication: MYOCARDIAL INFARCTION
     Dosage: 2 DF, QD (20 YEARS AGO)
     Route: 048
  7. ASA [Concomitant]
     Active Substance: ASPIRIN
     Indication: MYOCARDIAL INFARCTION
     Dosage: 2 DF, QD (20 YEARS AGO)
     Route: 048
  8. EXELON PATCH [Suspect]
     Active Substance: RIVASTIGMINE
     Indication: DEMENTIA ALZHEIMER^S TYPE
     Dosage: 1 DF, QD (1 MONTH) (THE ONE WITH THE LOWEST DOSE)
     Route: 062
  9. DIOVAN [Suspect]
     Active Substance: VALSARTAN
     Indication: MYOCARDIAL INFARCTION
  10. RIVOTRIL [Concomitant]
     Active Substance: CLONAZEPAM
     Indication: DEPRESSION
  11. COMBODART [Concomitant]
     Active Substance: DUTASTERIDE\TAMSULOSIN
     Indication: PROSTATIC DISORDER
     Dosage: 1 DF, QD (10 YEARS AGO)
     Route: 048

REACTIONS (10)
  - Anaemia [Recovered/Resolved with Sequelae]
  - Aggression [Not Recovered/Not Resolved]
  - Therapeutic response decreased [Not Recovered/Not Resolved]
  - Thrombosis [Not Recovered/Not Resolved]
  - Macular oedema [Recovered/Resolved with Sequelae]
  - Defaecation urgency [Not Recovered/Not Resolved]
  - Prostatic disorder [Recovered/Resolved with Sequelae]
  - Post procedural haemorrhage [Recovered/Resolved with Sequelae]
  - Abnormal behaviour [Not Recovered/Not Resolved]
  - Micturition urgency [Not Recovered/Not Resolved]
